FAERS Safety Report 6657771-3 (Version None)
Quarter: 2010Q1

REPORT INFORMATION
  Report Type: 
  Country: None (occurrence: None)
  Receive Date: 20100330
  Receipt Date: 20100208
  Transmission Date: 20100710
  Serious: Yes (Death)
  Sender: FDA-Public Use
  Company Number: US-TYCO HEALTHCARE/MALLINCKRODT-T200902232

PATIENT
  Sex: Male
  Weight: 71 kg

DRUGS (3)
  1. METHADOSE [Suspect]
     Dosage: UNK
     Dates: start: 20090622, end: 20090622
  2. OXYCONTIN [Suspect]
     Dosage: UNK
     Dates: start: 20090622, end: 20090622
  3. XANAX [Suspect]
     Dosage: UNK
     Dates: start: 20090621, end: 20090621

REACTIONS (2)
  - ACCIDENTAL DEATH [None]
  - DRUG ABUSE [None]
